FAERS Safety Report 15892456 (Version 1)
Quarter: 2019Q1

REPORT INFORMATION
  Report Type: Spontaneous
  Country: FR (occurrence: FR)
  Receive Date: 20190130
  Receipt Date: 20190130
  Transmission Date: 20190417
  Serious: No
  Sender: FDA-Public Use
  Company Number: FR-IPSEN-CABO-18012168

PATIENT
  Sex: Female

DRUGS (2)
  1. CABOMETYX [Suspect]
     Active Substance: CABOZANTINIB S-MALATE
     Dosage: 40 MG, QD
     Route: 048
  2. CABOMETYX [Suspect]
     Active Substance: CABOZANTINIB S-MALATE
     Indication: NEOPLASM MALIGNANT
     Dosage: 60 MG, UNK
     Route: 048

REACTIONS (7)
  - Epistaxis [Unknown]
  - Pain in extremity [Unknown]
  - Drug intolerance [Unknown]
  - Fungal infection [Unknown]
  - Mouth haemorrhage [Unknown]
  - Therapy cessation [Unknown]
  - Fatigue [Unknown]
